FAERS Safety Report 20554198 (Version 3)
Quarter: 2022Q1

REPORT INFORMATION
  Report Type: Spontaneous
  Country: IT (occurrence: IT)
  Receive Date: 20220304
  Receipt Date: 20220321
  Transmission Date: 20220423
  Serious: Yes (Disabling, Other)
  Sender: FDA-Public Use
  Company Number: IT-NOVARTISPH-NVSC2022IT050785

PATIENT
  Age: 75 Year
  Sex: Female

DRUGS (2)
  1. RASAGILINE [Suspect]
     Active Substance: RASAGILINE
     Indication: Parkinson^s disease
     Dosage: 1 MG, QD
     Route: 048
  2. ALPRAZOLAM [Concomitant]
     Active Substance: ALPRAZOLAM
     Indication: Product used for unknown indication
     Dosage: 2 MG
     Route: 065

REACTIONS (16)
  - Withdrawal syndrome [Recovering/Resolving]
  - Hypertension [Unknown]
  - Dermatitis allergic [Unknown]
  - Amimia [Recovering/Resolving]
  - Resting tremor [Recovering/Resolving]
  - Balance disorder [Recovering/Resolving]
  - Muscle rigidity [Recovering/Resolving]
  - Agitation [Recovering/Resolving]
  - Bradykinesia [Recovering/Resolving]
  - Depression [Recovering/Resolving]
  - Anxiety [Recovering/Resolving]
  - Dysphoria [Recovering/Resolving]
  - Fatigue [Unknown]
  - Vomiting [Unknown]
  - Nausea [Unknown]
  - Pain [Unknown]
